FAERS Safety Report 8182676-9 (Version None)
Quarter: 2012Q1

REPORT INFORMATION
  Report Type: 
  Country: None (occurrence: None)
  Receive Date: 20120301
  Receipt Date: 20120301
  Transmission Date: 20120608
  Serious: Yes (Hospitalization, Disabling, Other)
  Sender: FDA-Public Use
  Company Number: None

PATIENT
  Age: 82 Year
  Sex: Female
  Weight: 58.514 kg

DRUGS (1)
  1. ACTONEL [Suspect]
     Indication: OSTEOPOROSIS
     Dosage: 150 MGM 6 MONTHS MONTHLY ORAL
     Route: 048
     Dates: start: 20081001, end: 20090301

REACTIONS (6)
  - BALANCE DISORDER [None]
  - ABASIA [None]
  - FALL [None]
  - LIMB ASYMMETRY [None]
  - NEUROPATHY PERIPHERAL [None]
  - OSTEONECROSIS OF JAW [None]
